FAERS Safety Report 7132213-2 (Version None)
Quarter: 2010Q4

REPORT INFORMATION
  Report Type: 
  Country: None (occurrence: None)
  Receive Date: 20101202
  Receipt Date: 20101123
  Transmission Date: 20110411
  Serious: Yes (Hospitalization)
  Sender: FDA-Public Use
  Company Number: GB-BRISTOL-MYERS SQUIBB COMPANY-15089485

PATIENT
  Age: 60 Year
  Sex: Male
  Weight: 93 kg

DRUGS (3)
  1. CETUXIMAB [Suspect]
     Indication: NON-SMALL CELL LUNG CANCER
     Dosage: 5MG/ML; RECENT INF-29MAR2010; 250MG/M2 RECENT DOSE 250MG/M2:15MAR10-5APR10 RESTARTED ON 12APR10
     Route: 042
     Dates: start: 20100315
  2. CARBOPLATIN [Suspect]
     Indication: NON-SMALL CELL LUNG CANCER
     Dosage: ON DAY 1,8 OF 21-DAY CYCLE RECENTINF:15MAR10-5APR10(20DY) RESTRTD WITH 1 IN 3 WK 12APR10 1DF=5AUC
     Route: 042
     Dates: start: 20100315
  3. GEMCITABINE [Suspect]
     Indication: NON-SMALL CELL LUNG CANCER
     Dosage: RECENT INF-22MAR10;1000MG/M2DOSE:ON DAY 1,8 OF 21-DAY CYCLE15MAR10-5APR10 2IN 3 WK RESTD ON 12APR10
     Route: 042
     Dates: start: 20100315

REACTIONS (1)
  - PYREXIA [None]
